FAERS Safety Report 21188655 (Version 1)
Quarter: 2022Q3

REPORT INFORMATION
  Report Type: Spontaneous
  Country: CH (occurrence: CH)
  Receive Date: 20220809
  Receipt Date: 20220809
  Transmission Date: 20221027
  Serious: Yes (Other)
  Sender: FDA-Public Use
  Company Number: None

PATIENT
  Age: 62 Year
  Sex: Female

DRUGS (17)
  1. HERCEPTIN [Suspect]
     Active Substance: TRASTUZUMAB
     Indication: Breast cancer metastatic
     Dosage: 4-6 MG/KG
     Route: 042
     Dates: start: 201301
  2. HERCEPTIN [Suspect]
     Active Substance: TRASTUZUMAB
     Dosage: MAINTENANCE THERAPY
     Route: 042
     Dates: end: 201409
  3. HERCEPTIN [Suspect]
     Active Substance: TRASTUZUMAB
     Dosage: STARTING AT 6 MG/KG I.V., AND REDUCED TO 4 MG/KG OVER THE COURSE OF THE THERAPY
     Route: 042
     Dates: start: 201512, end: 201605
  4. HERCEPTIN [Suspect]
     Active Substance: TRASTUZUMAB
     Dosage: MAINTENANCE THERAPY
     Route: 042
  5. HERCEPTIN [Suspect]
     Active Substance: TRASTUZUMAB
     Route: 042
     Dates: start: 201712, end: 201803
  6. HERCEPTIN [Suspect]
     Active Substance: TRASTUZUMAB
     Dosage: MAINTENANCE THERAPY
     Route: 042
     Dates: end: 20200928
  7. HERCEPTIN [Suspect]
     Active Substance: TRASTUZUMAB
     Route: 042
     Dates: start: 20201208
  8. NAVELBINE [Concomitant]
     Active Substance: VINORELBINE TARTRATE
     Indication: Breast cancer
     Dosage: 01-06/2013; 40 MG+M2  16 MG/M2 12/2015 - 05/2016
  9. XGEVA [Concomitant]
     Active Substance: DENOSUMAB
     Dates: end: 2017
  10. PRADAXA [Concomitant]
     Active Substance: DABIGATRAN ETEXILATE MESYLATE
  11. SARIDON (SWITZERLAND) [Concomitant]
     Dosage: AS NECESSARY
  12. PANTOZOL [Concomitant]
     Active Substance: PANTOPRAZOLE SODIUM
     Route: 048
  13. VITAMIN D3 [Concomitant]
     Active Substance: CHOLECALCIFEROL
  14. ZOLPIDEM [Concomitant]
     Active Substance: ZOLPIDEM TARTRATE
     Dosage: AS NECESSARY
  15. ZYRTEC (SWITZERLAND) [Concomitant]
     Indication: Arthropod bite
  16. PREDNISONE [Concomitant]
     Active Substance: PREDNISONE
     Indication: Arthropod bite
  17. MENAQUINONE 6 [Concomitant]
     Active Substance: MENAQUINONE 6

REACTIONS (2)
  - Thrombocytopenia [Not Recovered/Not Resolved]
  - Iron deficiency [Not Recovered/Not Resolved]

NARRATIVE: CASE EVENT DATE: 20160601
